FAERS Safety Report 8631891 (Version 3)
Quarter: 2013Q2

REPORT INFORMATION
  Report Type: Spontaneous
  Country: CA (occurrence: CA)
  Receive Date: 20120625
  Receipt Date: 20130426
  Transmission Date: 20140414
  Serious: Yes (Hospitalization, Other)
  Sender: FDA-Public Use
  Company Number: CA-JNJFOC-20120607522

PATIENT
  Age: 64 Year
  Sex: Female
  Weight: 55.1 kg

DRUGS (3)
  1. INFLIXIMAB, RECOMINANT [Suspect]
     Indication: CROHN^S DISEASE
     Route: 042
     Dates: start: 20120423
  2. INFLIXIMAB, RECOMINANT [Suspect]
     Indication: CROHN^S DISEASE
     Route: 042
     Dates: end: 20121126
  3. INFLIXIMAB, RECOMINANT [Suspect]
     Indication: CROHN^S DISEASE
     Route: 042
     Dates: start: 201206

REACTIONS (1)
  - Lung adenocarcinoma [Unknown]
